FAERS Safety Report 24948311 (Version 3)
Quarter: 2025Q3

REPORT INFORMATION
  Report Type: Report from Study
  Country: US (occurrence: US)
  Receive Date: 20250210
  Receipt Date: 20250805
  Transmission Date: 20251021
  Serious: Yes (Other)
  Sender: SUNOVION
  Company Number: US-SMPA-2025SPA001066

PATIENT
  Age: 65 Year
  Sex: Male

DRUGS (7)
  1. ORGOVYX [Suspect]
     Active Substance: RELUGOLIX
     Indication: Prostate cancer
     Dosage: 120 MG, QD
     Route: 048
  2. ATORVASTATIN [Concomitant]
     Active Substance: ATORVASTATIN
  3. VITAMINS [Concomitant]
     Active Substance: VITAMINS
  4. CLARITIN [Concomitant]
     Active Substance: LORATADINE
  5. XARELTO [Concomitant]
     Active Substance: RIVAROXABAN
  6. XTANDI [Concomitant]
     Active Substance: ENZALUTAMIDE
  7. MINERALS\VITAMINS [Concomitant]
     Active Substance: MINERALS\VITAMINS

REACTIONS (5)
  - Thrombosis [Unknown]
  - Pain in extremity [Recovered/Resolved]
  - Hot flush [Unknown]
  - Fatigue [Unknown]
  - Therapy interrupted [Unknown]
